FAERS Safety Report 13677972 (Version 1)
Quarter: 2017Q2

REPORT INFORMATION
  Report Type: Spontaneous
  Country: US (occurrence: US)
  Receive Date: 20170622
  Receipt Date: 20170622
  Transmission Date: 20170830
  Serious: Yes (Hospitalization, Other)
  Sender: FDA-Public Use
  Company Number: US-PFIZER INC-2017267125

PATIENT
  Age: 34 Year
  Sex: Male

DRUGS (1)
  1. BUPRENORPHINE. [Suspect]
     Active Substance: BUPRENORPHINE
     Dosage: INJECTING BUPRENORPHINE INTO HIS POSTERIOR TIBIAL VEINS
     Route: 042

REACTIONS (2)
  - Drug use disorder [Unknown]
  - Dermatitis [Recovering/Resolving]
